FAERS Safety Report 7314723-8 (Version None)
Quarter: 2011Q1

REPORT INFORMATION
  Report Type: 
  Country: None (occurrence: None)
  Receive Date: 20110225
  Receipt Date: 20101113
  Transmission Date: 20110831
  Serious: No
  Sender: FDA-Public Use
  Company Number: US-MYLANLABS-2010S1021174

PATIENT
  Age: 19 Year
  Sex: Male

DRUGS (1)
  1. AMNESTEEM [Suspect]

REACTIONS (6)
  - EPISTAXIS [None]
  - LIP HAEMORRHAGE [None]
  - DRY EYE [None]
  - HEADACHE [None]
  - ARTHRALGIA [None]
  - CHAPPED LIPS [None]
